FAERS Safety Report 5221454-7 (Version None)
Quarter: 2007Q1

REPORT INFORMATION
  Report Type: 
  Country: None (occurrence: None)
  Receive Date: 20070126
  Receipt Date: 20070119
  Transmission Date: 20070707
  Serious: Yes (Hospitalization)
  Sender: FDA-Public Use
  Company Number: MY-MERCK-0701MYS00009

PATIENT
  Sex: Male
  Weight: 82 kg

DRUGS (4)
  1. CRIXIVAN [Suspect]
     Indication: HIV INFECTION
     Route: 048
     Dates: end: 20070104
  2. STAVUDINE [Suspect]
     Indication: HIV INFECTION
     Route: 048
  3. LAMIVUDINE [Suspect]
     Indication: HIV INFECTION
     Route: 048
  4. NORVIR [Concomitant]
     Indication: HIV INFECTION
     Route: 048

REACTIONS (1)
  - LACTIC ACIDOSIS [None]
